FAERS Safety Report 10558887 (Version 2)
Quarter: 2014Q4

REPORT INFORMATION
  Report Type: Spontaneous
  Country: NO (occurrence: NO)
  Receive Date: 20141101
  Receipt Date: 20141119
  Transmission Date: 20150529
  Serious: Yes (Hospitalization, Other)
  Sender: FDA-Public Use
  Company Number: NO-AUROBINDO-AUR-APL-2014-11440

PATIENT
  Age: 61 Year
  Sex: Female

DRUGS (11)
  1. MEROPENEM. [Suspect]
     Active Substance: MEROPENEM
     Indication: MALAISE
     Route: 065
  2. VANCOMYCIN [Concomitant]
     Active Substance: VANCOMYCIN
     Indication: MALAISE
     Route: 065
  3. PIPERACILLIN+TAZOBACTAM AUROBINDO [Suspect]
     Active Substance: PIPERACILLIN SODIUM\TAZOBACTAM SODIUM
     Indication: CHILLS
  4. CEFOTAXIME [Suspect]
     Active Substance: CEFOTAXIME\CEFOTAXIME SODIUM
     Indication: CHOLANGITIS
     Route: 065
  5. VANCOMYCIN [Concomitant]
     Active Substance: VANCOMYCIN
     Indication: PYREXIA
  6. MEROPENEM. [Suspect]
     Active Substance: MEROPENEM
     Indication: PYREXIA
  7. VANCOMYCIN [Concomitant]
     Active Substance: VANCOMYCIN
     Indication: CHILLS
  8. PIPERACILLIN+TAZOBACTAM AUROBINDO [Suspect]
     Active Substance: PIPERACILLIN SODIUM\TAZOBACTAM SODIUM
     Indication: MALAISE
     Route: 065
  9. PIPERACILLIN+TAZOBACTAM AUROBINDO [Suspect]
     Active Substance: PIPERACILLIN SODIUM\TAZOBACTAM SODIUM
     Indication: PYREXIA
  10. MEROPENEM. [Suspect]
     Active Substance: MEROPENEM
     Indication: CHILLS
  11. METRONIDAZOLE. [Concomitant]
     Active Substance: METRONIDAZOLE
     Indication: CHOLANGITIS
     Dosage: UNK
     Route: 065

REACTIONS (1)
  - Drug resistance [Not Recovered/Not Resolved]
